FAERS Safety Report 9134131 (Version 4)
Quarter: 2013Q2

REPORT INFORMATION
  Report Type: Spontaneous
  Country: US (occurrence: US)
  Receive Date: 20130304
  Receipt Date: 20130610
  Transmission Date: 20140414
  Serious: Yes (Other)
  Sender: FDA-Public Use
  Company Number: US-BIOGENIDEC-2013BI017588

PATIENT
  Age: 38 Year
  Sex: Male

DRUGS (4)
  1. TYSABRI [Suspect]
     Indication: MULTIPLE SCLEROSIS
     Route: 042
     Dates: start: 20120514
  2. TYSABRI [Suspect]
     Indication: MULTIPLE SCLEROSIS
     Route: 042
  3. TOPAMAX [Concomitant]
     Indication: HEADACHE
     Route: 048
     Dates: start: 2011
  4. EFFEXOR [Concomitant]
     Indication: DEPRESSION

REACTIONS (11)
  - Bone cyst [Recovered/Resolved]
  - Asthenia [Unknown]
  - Weight increased [Not Recovered/Not Resolved]
  - Insomnia [Not Recovered/Not Resolved]
  - Sleep apnoea syndrome [Not Recovered/Not Resolved]
  - Snoring [Not Recovered/Not Resolved]
  - Multiple sclerosis relapse [Unknown]
  - Headache [Recovered/Resolved]
  - Lower limb fracture [Recovered/Resolved]
  - Fall [Recovered/Resolved]
  - Ligament sprain [Recovered/Resolved]
